FAERS Safety Report 6975599-1 (Version None)
Quarter: 2010Q3

REPORT INFORMATION
  Report Type: 
  Country: None (occurrence: None)
  Receive Date: 20100910
  Receipt Date: 20100804
  Transmission Date: 20110219
  Serious: No
  Sender: FDA-Public Use
  Company Number: US-JNJFOC-20100505408

PATIENT
  Age: 4 Year
  Sex: Male
  Weight: 13.15 kg

DRUGS (6)
  1. CHILDREN'S MOTRIN [Suspect]
     Indication: PYREXIA
  2. CHILDREN'S MOTRIN [Suspect]
  3. CHILDREN'S MOTRIN [Suspect]
  4. CHILDREN'S MOTRIN [Suspect]
  5. CHILDREN'S TYLENOL [Suspect]
     Route: 065
  6. CHILDREN'S TYLENOL [Suspect]
     Indication: PYREXIA
     Route: 065

REACTIONS (5)
  - ABDOMINAL PAIN UPPER [None]
  - CONSTIPATION [None]
  - DIARRHOEA [None]
  - PRODUCT QUALITY ISSUE [None]
  - VOMITING [None]
